FAERS Safety Report 9312839 (Version 6)
Quarter: 2015Q1

REPORT INFORMATION
  Report Type: Spontaneous
  Country: US (occurrence: US)
  Receive Date: 20130528
  Receipt Date: 20150302
  Transmission Date: 20150721
  Serious: Yes (Hospitalization)
  Sender: FDA-Public Use
  Company Number: US-009507513-1305USA013031

PATIENT
  Sex: Male
  Weight: 90.7 kg

DRUGS (2)
  1. PROPECIA [Suspect]
     Active Substance: FINASTERIDE
     Indication: ALOPECIA
     Dosage: 1 MG, QD
     Route: 048
     Dates: start: 20020713, end: 20071028
  2. HYDROCHLOROTHIAZIDE. [Concomitant]
     Active Substance: HYDROCHLOROTHIAZIDE
     Indication: HYPERTENSION
     Dosage: UNK

REACTIONS (17)
  - Umbilical hernia [Unknown]
  - Dyspepsia [Unknown]
  - Soft tissue injury [Unknown]
  - Hepatic enzyme increased [Unknown]
  - Photophobia [Unknown]
  - Chest pain [Unknown]
  - Exostosis [Unknown]
  - Erectile dysfunction [Not Recovered/Not Resolved]
  - Sexual dysfunction [Not Recovered/Not Resolved]
  - Diverticulum [Unknown]
  - Hepatic steatosis [Unknown]
  - Blood cholesterol increased [Unknown]
  - Brain injury [Unknown]
  - Haemorrhoids [Unknown]
  - Gynaecomastia [Unknown]
  - Semen volume decreased [Unknown]
  - Hormone level abnormal [Unknown]

NARRATIVE: CASE EVENT DATE: 2002
